FAERS Safety Report 7204305-0 (Version None)
Quarter: 2010Q4

REPORT INFORMATION
  Report Type: 
  Country: None (occurrence: None)
  Receive Date: 20101220
  Receipt Date: 20101209
  Transmission Date: 20110411
  Serious: Yes (Hospitalization)
  Sender: FDA-Public Use
  Company Number: 779253

PATIENT
  Age: 33 Year
  Sex: Female

DRUGS (1)
  1. PACLITAXEL [Suspect]
     Indication: OVARIAN CANCER
     Dosage: 350 MG MILLIGRAM(S), INTRAVENOUS
     Route: 042
     Dates: start: 20101203, end: 20101203

REACTIONS (5)
  - CYANOSIS [None]
  - FLUSHING [None]
  - HYPERSENSITIVITY [None]
  - LARYNGOSPASM [None]
  - OXYGEN SATURATION DECREASED [None]
